APPROVED DRUG PRODUCT: CYCLOPHOSPHAMIDE
Active Ingredient: CYCLOPHOSPHAMIDE
Strength: 200MG/VIAL
Dosage Form/Route: INJECTABLE;INJECTION
Application: A088372 | Product #001
Applicant: BAXTER HEALTHCARE CORP
Approved: Jul 3, 1986 | RLD: No | RS: No | Type: DISCN